FAERS Safety Report 6089668-4 (Version None)
Quarter: 2009Q1

REPORT INFORMATION
  Report Type: 
  Country: None (occurrence: None)
  Receive Date: 20090224
  Receipt Date: 20090220
  Transmission Date: 20090719
  Serious: No
  Sender: FDA-Public Use
  Company Number: US-B.I. PHARMACEUTICALS,INC./RIDGEFIELD-2009-BP-02154BP

PATIENT
  Sex: Male

DRUGS (3)
  1. SPIRIVA [Suspect]
     Indication: CHRONIC OBSTRUCTIVE PULMONARY DISEASE
     Dosage: 18MCG
     Route: 055
     Dates: start: 20050101
  2. TRIAM HCTZ (DYAZIDE) [Concomitant]
     Indication: HYPERTENSION
     Dosage: 37.5MG
     Route: 048
     Dates: start: 19880101
  3. ZANTAC [Concomitant]
     Indication: DYSPEPSIA

REACTIONS (2)
  - MUSCLE SPASMS [None]
  - MYALGIA [None]
